FAERS Safety Report 12999297 (Version 2)
Quarter: 2017Q1

REPORT INFORMATION
  Report Type: Report from Study
  Country: FR (occurrence: FR)
  Receive Date: 20161205
  Receipt Date: 20170213
  Transmission Date: 20170428
  Serious: Yes (Life-Threatening, Hospitalization)
  Sender: FDA-Public Use
  Company Number: FR-PFIZER INC-2016558060

PATIENT
  Age: 60 Year
  Sex: Male

DRUGS (5)
  1. VENTOLINE [Concomitant]
     Active Substance: ALBUTEROL
     Dosage: UNK UNK, AS NEEDED
  2. SALBUTAMOL [Concomitant]
     Active Substance: ALBUTEROL
     Dosage: 200 MG, 2X/DAY
     Route: 048
  3. NO SUBJECT DRUG [Suspect]
     Active Substance: UNSPECIFIED INGREDIENT
     Dosage: NO DOSE GIVEN
  4. AERIUS [Concomitant]
     Active Substance: DESLORATADINE
     Dosage: 5 MG, 1X/DAY
     Route: 048
  5. METHOTREXATE. [Suspect]
     Active Substance: METHOTREXATE
     Indication: PSORIASIS
     Dosage: 20 MG, WEEKLY
     Dates: start: 20160601, end: 20161115

REACTIONS (3)
  - Paraesthesia [Not Recovered/Not Resolved]
  - Brain abscess [Not Recovered/Not Resolved]
  - Listeriosis [Not Recovered/Not Resolved]

NARRATIVE: CASE EVENT DATE: 20161115
